FAERS Safety Report 5199839-7 (Version None)
Quarter: 2006Q4

REPORT INFORMATION
  Report Type: 
  Country: None (occurrence: None)
  Receive Date: 20061229
  Receipt Date: 20061218
  Transmission Date: 20070319
  Serious: Yes (Hospitalization)
  Sender: FDA-Public Use
  Company Number: AND_0500_2006

PATIENT
  Sex: Male

DRUGS (1)
  1. METFORMIN HCL [Suspect]
     Indication: DRUG USE FOR UNKNOWN INDICATION
     Dosage: 1 DF QDAY PO
     Route: 048

REACTIONS (4)
  - HAEMODIALYSIS [None]
  - HYPOTENSION [None]
  - LACTIC ACIDOSIS [None]
  - RENAL FAILURE ACUTE [None]
